FAERS Safety Report 7685296-5 (Version None)
Quarter: 2011Q3

REPORT INFORMATION
  Report Type: 
  Country: None (occurrence: None)
  Receive Date: 20110816
  Receipt Date: 20110808
  Transmission Date: 20111222
  Serious: Yes (Hospitalization)
  Sender: FDA-Public Use
  Company Number: US-SANOFI-AVENTIS-2011SA051854

PATIENT
  Age: 61 Year
  Sex: Female
  Weight: 61 kg

DRUGS (4)
  1. BLINDED THERAPY [Suspect]
     Indication: NON-SMALL CELL LUNG CANCER
     Route: 048
     Dates: start: 20110207, end: 20110317
  2. LOVENOX [Suspect]
     Route: 065
  3. IBUPROFEN [Suspect]
     Route: 065
  4. BLINDED THERAPY [Suspect]
     Route: 048
     Dates: start: 20110525, end: 20110605

REACTIONS (4)
  - UPPER GASTROINTESTINAL HAEMORRHAGE [None]
  - ANAEMIA [None]
  - FRACTURE [None]
  - OESOPHAGITIS [None]
